FAERS Safety Report 10290154 (Version 3)
Quarter: 2014Q3

REPORT INFORMATION
  Report Type: Spontaneous
  Country: JP (occurrence: JP)
  Receive Date: 20140710
  Receipt Date: 20140903
  Transmission Date: 20150326
  Serious: Yes (Death, Hospitalization, Other)
  Sender: FDA-Public Use
  Company Number: PHHY2014JP084791

PATIENT
  Age: 69 Year
  Sex: Male

DRUGS (5)
  1. ARTANE [Concomitant]
     Active Substance: TRIHEXYPHENIDYL HYDROCHLORIDE
     Dosage: 4 MG
     Route: 048
     Dates: end: 20140704
  2. NAUZELIN [Concomitant]
     Active Substance: DOMPERIDONE
     Dosage: 20 MG
     Route: 048
     Dates: end: 20140704
  3. ROZEREM [Concomitant]
     Active Substance: RAMELTEON
     Dosage: 8 MG
     Route: 048
     Dates: end: 20140704
  4. CLOZARIL [Suspect]
     Active Substance: CLOZAPINE
     Indication: SCHIZOPHRENIA
     Dosage: UKN
     Route: 048
     Dates: start: 20140304
  5. CLOZARIL [Suspect]
     Active Substance: CLOZAPINE
     Dosage: 175 MG DAILY
     Route: 048
     Dates: end: 20140704

REACTIONS (8)
  - Oedema [Unknown]
  - Ileus paralytic [Fatal]
  - Akinesia [Unknown]
  - Asthenia [Fatal]
  - Ascites [Unknown]
  - Respiratory failure [Fatal]
  - Fracture [Fatal]
  - Pneumonia aspiration [Fatal]

NARRATIVE: CASE EVENT DATE: 20140611
